FAERS Safety Report 15768332 (Version 1)
Quarter: 2018Q4

REPORT INFORMATION
  Report Type: Spontaneous
  Country: GB (occurrence: GB)
  Receive Date: 20181227
  Receipt Date: 20181227
  Transmission Date: 20190205
  Serious: Yes (Other)
  Sender: FDA-Public Use
  Company Number: PHHY2018GB195106

PATIENT
  Age: 26 Year
  Sex: Male

DRUGS (1)
  1. IMATINIB. [Suspect]
     Active Substance: IMATINIB MESYLATE
     Indication: CHRONIC MYELOID LEUKAEMIA
     Dosage: 400 MG, UNK
     Route: 065
     Dates: start: 20170126, end: 20170309

REACTIONS (11)
  - Skin lesion [Recovered/Resolved]
  - Peripheral ischaemia [Unknown]
  - Drug intolerance [Unknown]
  - Chronic myeloid leukaemia [Unknown]
  - Graft versus host disease [Not Recovered/Not Resolved]
  - Pleural effusion [Unknown]
  - Leukaemia recurrent [Unknown]
  - Immunosuppression [Unknown]
  - Liver function test abnormal [Unknown]
  - Blast crisis in myelogenous leukaemia [Unknown]
  - Rash [Unknown]
